FAERS Safety Report 6142763-3 (Version None)
Quarter: 2009Q2

REPORT INFORMATION
  Report Type: 
  Country: None (occurrence: None)
  Receive Date: 20090403
  Receipt Date: 20090325
  Transmission Date: 20091009
  Serious: Yes (Other)
  Sender: FDA-Public Use
  Company Number: FR-AVENTIS-200911187FR

PATIENT
  Age: 79 Year
  Sex: Male

DRUGS (8)
  1. ARAVA [Suspect]
     Indication: RHEUMATOID ARTHRITIS
     Route: 048
     Dates: start: 20080501, end: 20081202
  2. SELOKEN                            /00376902/ [Concomitant]
     Route: 048
  3. MODURETIC 5-50 [Concomitant]
     Route: 048
  4. CRESTOR [Concomitant]
     Route: 048
  5. KARDEGIC                           /00002703/ [Concomitant]
     Indication: PROPHYLAXIS
     Route: 048
  6. DIAMICRON [Concomitant]
     Route: 048
  7. INIPOMP                            /01263201/ [Concomitant]
     Indication: PROPHYLAXIS
     Route: 048
  8. NITROGLYCERIN [Concomitant]
     Indication: CARDIOVASCULAR EVENT PROPHYLAXIS
     Route: 002

REACTIONS (1)
  - MYCOSIS FUNGOIDES [None]
